FAERS Safety Report 19711233 (Version 1)
Quarter: 2021Q3

REPORT INFORMATION
  Report Type: Spontaneous
  Country: US (occurrence: US)
  Receive Date: 20210816
  Receipt Date: 20210816
  Transmission Date: 20211014
  Serious: No
  Sender: FDA-Public Use
  Company Number: US-GLAXOSMITHKLINE-USCH2021AMR053909

PATIENT
  Age: 77 Year
  Sex: Female
  Weight: 72.9 kg

DRUGS (3)
  1. NICODERM CQ [Suspect]
     Active Substance: NICOTINE
     Indication: SMOKING CESSATION THERAPY
     Dosage: UNK
     Dates: start: 202105
  2. NICOTINE. [Suspect]
     Active Substance: NICOTINE
  3. NICOTINE. [Suspect]
     Active Substance: NICOTINE
     Indication: SMOKING CESSATION THERAPY
     Dosage: 1 DF, QD
     Dates: start: 202105

REACTIONS (2)
  - Inappropriate schedule of product discontinuation [Unknown]
  - Urticaria [Unknown]
